FAERS Safety Report 7564358-7 (Version None)
Quarter: 2011Q2

REPORT INFORMATION
  Report Type: 
  Country: None (occurrence: None)
  Receive Date: 20110622
  Receipt Date: 20110609
  Transmission Date: 20111010
  Serious: Yes (Other)
  Sender: FDA-Public Use
  Company Number: PHHY2011CA13618

PATIENT
  Sex: Male

DRUGS (2)
  1. EXJADE [Suspect]
     Indication: REFRACTORY CYTOPENIA WITH MULTILINEAGE DYSPLASIA
     Dosage: 1250 MG
     Route: 048
     Dates: start: 20101101, end: 20110609
  2. EXJADE [Suspect]
     Dosage: 1750 MG,
     Route: 048
     Dates: start: 20101101, end: 20110609

REACTIONS (2)
  - LEUKAEMIA [None]
  - DIARRHOEA [None]
